FAERS Safety Report 11892458 (Version 17)
Quarter: 2017Q3

REPORT INFORMATION
  Report Type: Report from Study
  Country: BR (occurrence: BR)
  Receive Date: 20160106
  Receipt Date: 20170804
  Transmission Date: 20171127
  Serious: Yes (Life-Threatening, Other)
  Sender: FDA-Public Use
  Company Number: PHHY2015BR104809

PATIENT
  Age: 63 Year
  Sex: Female
  Weight: 48 kg

DRUGS (20)
  1. SANDOSTATIN LAR DEPOT [Suspect]
     Active Substance: OCTREOTIDE ACETATE
     Dosage: 30 MG, QMO (EVERY 28 DAYS)
     Route: 030
  2. SANDOSTATIN LAR DEPOT [Suspect]
     Active Substance: OCTREOTIDE ACETATE
     Dosage: 30 MG, (EVERY 24 DAYS)
     Route: 030
  3. AFINITOR [Suspect]
     Active Substance: EVEROLIMUS
     Indication: NEUROENDOCRINE TUMOUR
     Dosage: 10 MG, QD
     Route: 048
     Dates: start: 20150727, end: 201601
  4. SANDOSTATIN LAR DEPOT [Suspect]
     Active Substance: OCTREOTIDE ACETATE
     Dosage: 30 MG, QW3
     Route: 030
  5. SANDOSTATIN LAR DEPOT [Suspect]
     Active Substance: OCTREOTIDE ACETATE
     Indication: HEPATIC CANCER
     Dosage: 30 MG, QMO (EVERY 28 DAYS)
     Route: 030
     Dates: start: 20141008
  6. SANDOSTATIN LAR DEPOT [Suspect]
     Active Substance: OCTREOTIDE ACETATE
     Dosage: 30 MG, QMO
     Route: 030
  7. AFINITOR [Suspect]
     Active Substance: EVEROLIMUS
     Dosage: 5 MG, QD
     Route: 048
  8. SANDOSTATIN LAR DEPOT [Suspect]
     Active Substance: OCTREOTIDE ACETATE
     Dosage: 30 MG, (EVERY 21/22 DAYS)
     Route: 030
     Dates: start: 201510
  9. SANDOSTATIN LAR DEPOT [Suspect]
     Active Substance: OCTREOTIDE ACETATE
     Dosage: 30 MG, EVERY 24 DAYS
     Route: 030
     Dates: start: 201603
  10. SANDOSTATIN LAR DEPOT [Suspect]
     Active Substance: OCTREOTIDE ACETATE
     Dosage: 30 MG, EVERY 24 DAYS
     Route: 030
  11. AFINITOR [Suspect]
     Active Substance: EVEROLIMUS
     Dosage: 10 MG, QD
     Route: 048
  12. HYDROCHLOROTHIAZIDE. [Concomitant]
     Active Substance: HYDROCHLOROTHIAZIDE
     Indication: HYPERTENSION
     Dosage: 1 DF, QD
     Route: 048
  13. FLU VACCINE [Concomitant]
     Active Substance: INFLUENZA VIRUS VACCINE
     Indication: PRODUCT USED FOR UNKNOWN INDICATION
     Route: 065
  14. SANDOSTATIN LAR DEPOT [Suspect]
     Active Substance: OCTREOTIDE ACETATE
     Indication: NEUROENDOCRINE TUMOUR
     Dosage: 30 MG, QMO (EVERY 30 DAYS)
     Route: 030
  15. AFINITOR [Suspect]
     Active Substance: EVEROLIMUS
     Indication: HEPATIC CANCER
     Dosage: UNK
     Route: 065
     Dates: start: 2014
  16. AFINITOR [Suspect]
     Active Substance: EVEROLIMUS
     Dosage: 5 MG, QD
     Route: 048
  17. AFINITOR [Suspect]
     Active Substance: EVEROLIMUS
     Dosage: 10 MG ALTERNATE TO 5 MG QD
     Route: 048
  18. AFINITOR [Suspect]
     Active Substance: EVEROLIMUS
     Dosage: 10 MG, QD
     Route: 048
     Dates: start: 20170103
  19. SELOZOK [Concomitant]
     Active Substance: METOPROLOL SUCCINATE
     Indication: HYPERTENSION
     Dosage: 1 DF, QD
     Route: 048
  20. SANDOSTATIN LAR DEPOT [Suspect]
     Active Substance: OCTREOTIDE ACETATE
     Dosage: 30 MG, EVERY 23 DAYS
     Route: 030
     Dates: start: 201601

REACTIONS (68)
  - Feeling abnormal [Unknown]
  - Anaemia [Recovering/Resolving]
  - Asthenia [Unknown]
  - Memory impairment [Unknown]
  - Abnormal dreams [Unknown]
  - Head discomfort [Unknown]
  - Blood cholesterol increased [Unknown]
  - Dyspnoea [Unknown]
  - Diabetes mellitus [Unknown]
  - Depression [Unknown]
  - Toothache [Unknown]
  - Alopecia [Unknown]
  - Hypothyroidism [Unknown]
  - Cataract [Unknown]
  - Abdominal pain [Recovered/Resolved]
  - Blood pressure increased [Unknown]
  - Dry mouth [Unknown]
  - Crying [Unknown]
  - Headache [Unknown]
  - Diarrhoea [Unknown]
  - Aphthous ulcer [Recovering/Resolving]
  - Skin discolouration [Unknown]
  - Loss of consciousness [Unknown]
  - Oral pain [Unknown]
  - Epistaxis [Recovering/Resolving]
  - Feeding disorder [Unknown]
  - Sleep disorder due to general medical condition, insomnia type [Unknown]
  - Dry skin [Unknown]
  - Oral mucosal discolouration [Unknown]
  - Drug intolerance [Unknown]
  - Blood chromogranin A increased [Unknown]
  - Weight decreased [Recovering/Resolving]
  - Drug ineffective [Unknown]
  - Glossodynia [Unknown]
  - Concomitant disease progression [Unknown]
  - Pain [Unknown]
  - Osteoarthritis [Unknown]
  - Dry throat [Unknown]
  - Retching [Unknown]
  - Abdominal pain upper [Recovered/Resolved]
  - Flatulence [Recovered/Resolved]
  - Depression suicidal [Unknown]
  - Hepatic neoplasm [Unknown]
  - Myopia [Unknown]
  - Malaise [Recovering/Resolving]
  - Dysstasia [Unknown]
  - Eye swelling [Unknown]
  - Skin discolouration [Recovered/Resolved]
  - Increased appetite [Unknown]
  - Blood glucose decreased [Unknown]
  - Noninfective gingivitis [Not Recovered/Not Resolved]
  - Spinal disorder [Unknown]
  - Aphasia [Unknown]
  - Anxiety [Unknown]
  - Fatigue [Recovering/Resolving]
  - Vomiting [Unknown]
  - Inappropriate schedule of drug administration [Unknown]
  - Dementia Alzheimer^s type [Unknown]
  - Vomiting [Recovered/Resolved]
  - Astigmatism [Unknown]
  - Gait disturbance [Unknown]
  - Movement disorder [Unknown]
  - Syncope [Unknown]
  - Wound [Unknown]
  - Erythema [Unknown]
  - Eye pain [Unknown]
  - Cough [Unknown]
  - Influenza [Recovering/Resolving]

NARRATIVE: CASE EVENT DATE: 201509
